FAERS Safety Report 9947946 (Version 1)
Quarter: 2014Q1

REPORT INFORMATION
  Report Type: Spontaneous
  Country: US (occurrence: None)
  Receive Date: 20140122
  Receipt Date: 20140122
  Transmission Date: 20141002
  Serious: Yes (Other)
  Sender: FDA-Public Use
  Company Number: AP356-00181-SPO-US

PATIENT
  Age: 41 Year
  Sex: Male
  Weight: 117.9 kg

DRUGS (2)
  1. BELVIQ (LORCASERIN HYDROCHLORIDE) [Suspect]
     Indication: BODY MASS INDEX INCREASED
     Route: 048
     Dates: start: 20130701
  2. ALTACE (RAMIPRIL) [Concomitant]

REACTIONS (2)
  - Headache [None]
  - Dry mouth [None]
